FAERS Safety Report 11701222 (Version 4)
Quarter: 2015Q4

REPORT INFORMATION
  Report Type: Spontaneous
  Country: JP (occurrence: JP)
  Receive Date: 20151105
  Receipt Date: 20151221
  Transmission Date: 20160304
  Serious: Yes (Life-Threatening, Hospitalization, Other)
  Sender: FDA-Public Use
  Company Number: JP-PFIZER INC-2015315285

PATIENT
  Age: 41 Year
  Sex: Male
  Weight: 91 kg

DRUGS (6)
  1. FUNGUARD [Concomitant]
     Active Substance: MICAFUNGIN SODIUM
     Indication: FEBRILE NEUTROPENIA
     Dosage: 150 MG, DAILY
     Route: 041
     Dates: start: 20150711, end: 20150717
  2. FINIBAX [Concomitant]
     Active Substance: DORIPENEM MONOHYDRATE
     Indication: FEBRILE NEUTROPENIA
     Dosage: 3 G, DAILY
     Route: 041
     Dates: start: 20150711, end: 20150721
  3. ZOSYN [Suspect]
     Active Substance: PIPERACILLIN SODIUM\TAZOBACTAM SODIUM
     Indication: FEBRILE NEUTROPENIA
     Dosage: 4.5 G, 3X/DAY
     Route: 041
     Dates: start: 20150710, end: 20150710
  4. NEUTROGIN [Concomitant]
     Active Substance: LENOGRASTIM
     Indication: WHITE BLOOD CELL COUNT DECREASED
     Dosage: 100 UG, DAILY
     Route: 058
     Dates: start: 20150706, end: 20150711
  5. ZOSYN [Suspect]
     Active Substance: PIPERACILLIN SODIUM\TAZOBACTAM SODIUM
     Dosage: 13.5 G, DAILY
     Route: 041
     Dates: start: 20150721, end: 20150722
  6. BAKTAR [Concomitant]
     Active Substance: SULFAMETHOXAZOLE\TRIMETHOPRIM
     Indication: ANTIFUNGAL PROPHYLAXIS
     Dosage: 1 DF, DAILY
     Route: 048
     Dates: start: 201506

REACTIONS (2)
  - Histiocytosis haematophagic [Recovered/Resolved]
  - Drug eruption [Recovered/Resolved]

NARRATIVE: CASE EVENT DATE: 20150710
